FAERS Safety Report 15897123 (Version 1)
Quarter: 2019Q1

REPORT INFORMATION
  Report Type: Spontaneous
  Country: NL (occurrence: NL)
  Receive Date: 20190131
  Receipt Date: 20190131
  Transmission Date: 20190417
  Serious: Yes (Hospitalization, Other)
  Sender: FDA-Public Use
  Company Number: NL-GLAXOSMITHKLINE-NL2019013064

PATIENT
  Age: 64 Year
  Sex: Female
  Weight: 65 kg

DRUGS (3)
  1. CARBIDOPA AND LEVODOPA [Concomitant]
     Active Substance: CARBIDOPA\LEVODOPA
     Indication: PRODUCT USED FOR UNKNOWN INDICATION
     Dosage: 4DD1
     Route: 065
  2. ADARTREL [Suspect]
     Active Substance: ROPINIROLE
     Indication: PARKINSON^S DISEASE
     Dosage: 2 X DAAGS 4 MG
     Route: 048
     Dates: start: 201709, end: 20181106
  3. OMEPRAZOL [Concomitant]
     Active Substance: OMEPRAZOLE
     Indication: PRODUCT USED FOR UNKNOWN INDICATION
     Dosage: 1DD1
     Route: 065

REACTIONS (1)
  - Congestive cardiomyopathy [Recovered/Resolved with Sequelae]

NARRATIVE: CASE EVENT DATE: 20180709
